FAERS Safety Report 5600810-9 (Version None)
Quarter: 2008Q1

REPORT INFORMATION
  Report Type: 
  Country: None (occurrence: None)
  Receive Date: 20080123
  Receipt Date: 20080111
  Transmission Date: 20080703
  Serious: Yes (Hospitalization)
  Sender: FDA-Public Use
  Company Number: FR-PFIZER INC-2008003927

PATIENT
  Sex: Female

DRUGS (11)
  1. SOLU-MEDROL [Suspect]
     Route: 042
     Dates: start: 20071003, end: 20071004
  2. KYTRIL [Suspect]
     Route: 042
     Dates: start: 20071004, end: 20071004
  3. ENDOXAN [Suspect]
     Route: 042
     Dates: start: 20071004, end: 20071004
  4. UROMITEXAN [Suspect]
     Dates: start: 20071004, end: 20071004
  5. CLONAZEPAM [Concomitant]
  6. TRAMADOL HYDROCHLORIDE AND ACETAMINOPHEN [Concomitant]
  7. GABAPENTIN [Concomitant]
  8. PREDNISONE [Concomitant]
  9. POTASSIUM CHLORIDE [Concomitant]
  10. ALENDRONIC ACID [Concomitant]
  11. CALCIUM CARBONATE/COLECALCIFEROL [Concomitant]

REACTIONS (2)
  - PROTHROMBIN TIME PROLONGED [None]
  - TRANSAMINASES INCREASED [None]
